FAERS Safety Report 23784260 (Version 1)
Quarter: 2024Q2

REPORT INFORMATION
  Report Type: Spontaneous
  Country: US (occurrence: None)
  Receive Date: 20240425
  Receipt Date: 20240425
  Transmission Date: 20240716
  Serious: No
  Sender: FDA-Public Use
  Company Number: None

PATIENT
  Age: 44 Year
  Sex: Female

DRUGS (1)
  1. CYANOCOBALAMIN\GLYCINE\TIRZEPATIDE [Suspect]
     Active Substance: CYANOCOBALAMIN\GLYCINE\TIRZEPATIDE
     Dosage: 0.5 ML WEEKLY SUBCUTAENOUS
     Route: 058

REACTIONS (4)
  - Abdominal discomfort [None]
  - Nausea [None]
  - Vomiting [None]
  - Dyspepsia [None]

NARRATIVE: CASE EVENT DATE: 20240416
